FAERS Safety Report 5455076-X (Version None)
Quarter: 2007Q3

REPORT INFORMATION
  Report Type: 
  Country: None (occurrence: None)
  Receive Date: 20070913
  Receipt Date: 20070821
  Transmission Date: 20080115
  Serious: Yes (Other)
  Sender: FDA-Public Use
  Company Number: 6037552

PATIENT
  Age: 67 Year
  Sex: Male

DRUGS (6)
  1. CIPROFLOXACIN [Suspect]
     Indication: DRUG USE FOR UNKNOWN INDICATION
     Dosage: (500 MG)
     Route: 048
     Dates: start: 20070622, end: 20070622
  2. DIGOXIN [Concomitant]
  3. FYBOGEL (PLANTAGO OVATA) [Concomitant]
  4. MEBEVERINE HYDROCHLORIDE (MEBEVERINE HYDROCHLORIDE) [Concomitant]
  5. MOMETASONE (MOMETASONE) [Concomitant]
  6. WARFARIN SODIUM [Concomitant]

REACTIONS (3)
  - DYSKINESIA [None]
  - PRESYNCOPE [None]
  - VISUAL DISTURBANCE [None]
